FAERS Safety Report 13021808 (Version 1)
Quarter: 2016Q4

REPORT INFORMATION
  Report Type: Spontaneous
  Country: GB (occurrence: GB)
  Receive Date: 20161213
  Receipt Date: 20161213
  Transmission Date: 20170207
  Serious: Yes (Hospitalization)
  Sender: FDA-Public Use
  Company Number: GB-ACCORD-046296

PATIENT
  Age: 77 Year
  Sex: Male
  Weight: 101.6 kg

DRUGS (7)
  1. DOXAZOSIN [Concomitant]
     Active Substance: DOXAZOSIN\DOXAZOSIN MESYLATE
     Dosage: WITHDRAWN.
  2. RAMIPRIL. [Suspect]
     Active Substance: RAMIPRIL
     Indication: HYPERTENSION
     Route: 048
     Dates: start: 20161117, end: 20161118
  3. AMLODIPINE [Concomitant]
     Active Substance: AMLODIPINE BESYLATE
     Dosage: WITHDRAWN. CHANGED TO LERCANIDIPINE.
     Dates: end: 20161117
  4. EPROSARTAN/EPROSARTAN MESILATE [Concomitant]
     Dosage: WITHDRAWN.
  5. LERCANIDIPINE [Concomitant]
     Active Substance: LERCANIDIPINE
     Dosage: WITHDRAWN.
     Dates: start: 20161117
  6. LEVOTHYROXINE. [Concomitant]
     Active Substance: LEVOTHYROXINE
  7. ATENOLOL/ATENOLOL HYDROCHLORIDE [Concomitant]
     Dosage: WITHDRAWN. CHANGED TO RAMIPRIL.
     Dates: end: 20161117

REACTIONS (3)
  - Chest pain [Recovering/Resolving]
  - Acute kidney injury [Recovering/Resolving]
  - Hepatic enzyme abnormal [Unknown]

NARRATIVE: CASE EVENT DATE: 20161118
